FAERS Safety Report 4322557-1 (Version None)
Quarter: 2004Q1

REPORT INFORMATION
  Report Type: 
  Country: None (occurrence: None)
  Receive Date: 20040319
  Receipt Date: 20040302
  Transmission Date: 20041129
  Serious: Yes (Other)
  Sender: FDA-Public Use
  Company Number: 2004-02-1707

PATIENT
  Age: 50 Year
  Sex: Female

DRUGS (16)
  1. CLARITIN [Suspect]
     Indication: RHINITIS
     Dosage: 10 MG QD
     Dates: start: 20030719, end: 20030101
  2. CLARITIN [Suspect]
     Indication: RHINITIS
     Dosage: 10 MG QD
     Dates: start: 20030920, end: 20030101
  3. CELESTAMINE TAB [Suspect]
     Indication: ASTHMA
     Dosage: 2T QD- 1T QD ORAL
     Route: 048
     Dates: start: 19970913, end: 20030602
  4. CELESTAMINE TAB [Suspect]
     Indication: ASTHMA
     Dosage: 2T QD- 1T QD ORAL
     Route: 048
     Dates: start: 20030603, end: 20031010
  5. CELESTAMINE TAB [Suspect]
     Indication: ASTHMA
     Dosage: 2T QD- 1T QD ORAL
     Route: 048
     Dates: start: 20031011, end: 20040201
  6. CELESTAMINE TAB [Suspect]
     Indication: ASTHMA
     Dosage: 2T QD- 1T QD ORAL
     Route: 048
     Dates: start: 20040201
  7. LIPITOR [Concomitant]
  8. THEO-DUR [Concomitant]
  9. BRICANYL [Concomitant]
  10. ISOPRENALINE HCL [Concomitant]
  11. ALDECIN (BECLOEMTHASONE DIPROPIONATE) [Concomitant]
  12. BECONASE [Concomitant]
  13. SIMVASTATIN [Concomitant]
  14. FLUVASTATIN [Concomitant]
  15. LIPITOR [Concomitant]
  16. NU-LOTAN (LOSARTAN POTASSIUM) [Concomitant]

REACTIONS (21)
  - ADRENAL INSUFFICIENCY [None]
  - ASTHMA [None]
  - BLOOD CHOLESTEROL INCREASED [None]
  - BLOOD PRESSURE INCREASED [None]
  - BLOOD PRESSURE SYSTOLIC INCREASED [None]
  - DRUG EFFECT DECREASED [None]
  - DRY MOUTH [None]
  - DRY SKIN [None]
  - EYE PRURITUS [None]
  - FACE OEDEMA [None]
  - GENERALISED OEDEMA [None]
  - HEADACHE [None]
  - MUCOSAL DRYNESS [None]
  - OEDEMA PERIPHERAL [None]
  - RHINITIS [None]
  - SKIN DISORDER [None]
  - SPEECH DISORDER [None]
  - STRESS SYMPTOMS [None]
  - THIRST [None]
  - TREMOR [None]
  - WEIGHT INCREASED [None]
